FAERS Safety Report 5761421-8 (Version None)
Quarter: 2008Q2

REPORT INFORMATION
  Report Type: 
  Country: None (occurrence: None)
  Receive Date: 20080606
  Receipt Date: 20080602
  Transmission Date: 20081010
  Serious: Yes (Life-Threatening, Other)
  Sender: FDA-Public Use
  Company Number: GB-ABBOTT-08P-167-0450964-00

PATIENT
  Sex: Male

DRUGS (6)
  1. HUMIRA [Suspect]
     Indication: RHEUMATOID ARTHRITIS
     Route: 058
     Dates: start: 20080101, end: 20080301
  2. METHOTREXATE [Concomitant]
     Indication: RHEUMATOID ARTHRITIS
     Dosage: 20 MG WEEKLY
     Route: 048
     Dates: start: 20070101, end: 20080401
  3. PREDNISOLONE [Concomitant]
     Indication: RHEUMATOID ARTHRITIS
     Dosage: 7.5 MG EVERY OTHER DAY
     Route: 048
     Dates: start: 20070101, end: 20080401
  4. ALENDRONATE SODIUM [Concomitant]
     Indication: MINERAL SUPPLEMENTATION
     Dosage: 70 MG WEEKLY
     Route: 048
     Dates: start: 20070101, end: 20080401
  5. SIMVASTATIN [Concomitant]
     Indication: BLOOD CHOLESTEROL INCREASED
     Route: 048
  6. FOLIC ACID [Concomitant]
     Indication: VITAMIN SUPPLEMENTATION
     Dosage: 5 MG WEEKLY
     Route: 048
     Dates: start: 20070101

REACTIONS (6)
  - BALANCE DISORDER [None]
  - BRAIN NEOPLASM MALIGNANT [None]
  - LUNG NEOPLASM MALIGNANT [None]
  - PRODUCTIVE COUGH [None]
  - VERTIGO [None]
  - WEIGHT DECREASED [None]
